FAERS Safety Report 7538348-4 (Version None)
Quarter: 2011Q2

REPORT INFORMATION
  Report Type: 
  Country: None (occurrence: None)
  Receive Date: 20110609
  Receipt Date: 20110607
  Transmission Date: 20111010
  Serious: Yes (Other)
  Sender: FDA-Public Use
  Company Number: US-AMGEN-USASP2011029396

PATIENT
  Sex: Male

DRUGS (2)
  1. ALIMTA [Concomitant]
  2. NEULASTA [Suspect]
     Indication: CHEMOTHERAPY

REACTIONS (3)
  - HAEMATEMESIS [None]
  - PERINEAL PAIN [None]
  - PAIN [None]
